FAERS Safety Report 14351167 (Version 1)
Quarter: 2018Q1

REPORT INFORMATION
  Report Type: Spontaneous
  Country: US (occurrence: US)
  Receive Date: 20180104
  Receipt Date: 20180104
  Transmission Date: 20180509
  Serious: No
  Sender: FDA-Public Use
  Company Number: US-PFIZER INC-2017554960

PATIENT
  Sex: Female

DRUGS (2)
  1. ESTRING [Suspect]
     Active Substance: ESTRADIOL
     Indication: ATROPHIC VULVOVAGINITIS
     Dosage: UNK (1 RING EVERY 3 MONTHS)
     Route: 067
     Dates: start: 2016
  2. SYNTHROID [Concomitant]
     Active Substance: LEVOTHYROXINE SODIUM
     Indication: HYPOTHYROIDISM
     Dosage: 88 UG, 1X/DAY (88 MCG ONCE A DAY BY MOUTH)
     Route: 048

REACTIONS (6)
  - Drug ineffective [Unknown]
  - Restlessness [Unknown]
  - Feeling abnormal [Unknown]
  - Product quality issue [Unknown]
  - Poor quality drug administered [Unknown]
  - Gait disturbance [Unknown]
